FAERS Safety Report 7457871-4 (Version None)
Quarter: 2011Q2

REPORT INFORMATION
  Report Type: 
  Country: None (occurrence: None)
  Receive Date: 20110504
  Receipt Date: 20110425
  Transmission Date: 20111010
  Serious: Yes (Other)
  Sender: FDA-Public Use
  Company Number: PHHY2011US35057

PATIENT
  Age: 83 Year
  Sex: Male

DRUGS (6)
  1. GENTEAL [Suspect]
  2. CARTIA XT [Concomitant]
  3. SYSTANE [Suspect]
     Indication: DRY EYE
  4. RESTASIS [Suspect]
     Indication: DRY EYE
  5. FRESHKOTE [Suspect]
     Indication: DRY EYE
  6. LUTEIN [Concomitant]

REACTIONS (2)
  - EYE DISCHARGE [None]
  - VISION BLURRED [None]
